FAERS Safety Report 10185518 (Version 1)
Quarter: 2014Q2

REPORT INFORMATION
  Report Type: Spontaneous
  Country: US (occurrence: None)
  Receive Date: 20140520
  Receipt Date: 20140520
  Transmission Date: 20141212
  Serious: No
  Sender: FDA-Public Use
  Company Number: None

PATIENT
  Age: 45 Year
  Sex: Female
  Weight: 64.8 kg

DRUGS (2)
  1. CLOFAZIMINE [Suspect]
     Indication: LUNG INFECTION
     Route: 048
  2. CLOFAZIMINE [Suspect]
     Indication: MYCOBACTERIAL INFECTION
     Route: 048

REACTIONS (2)
  - Cough [None]
  - Skin hyperpigmentation [None]
